FAERS Safety Report 8361384-5 (Version None)
Quarter: 2012Q2

REPORT INFORMATION
  Report Type: 
  Country: None (occurrence: None)
  Receive Date: 20120515
  Receipt Date: 20120511
  Transmission Date: 20120825
  Serious: Yes (Death)
  Sender: FDA-Public Use
  Company Number: US-BAYER-2012-037004

PATIENT
  Age: 59 Year
  Sex: Male

DRUGS (2)
  1. LAXATIVES [Concomitant]
     Indication: ABDOMINAL DISCOMFORT
  2. NEXAVAR [Suspect]
     Indication: HEPATIC NEOPLASM MALIGNANT
     Dosage: 1 DF, QD
     Dates: start: 20120412

REACTIONS (3)
  - ABDOMINAL DISTENSION [None]
  - OESOPHAGEAL VARICES HAEMORRHAGE [None]
  - OEDEMA PERIPHERAL [None]
